FAERS Safety Report 14255804 (Version 1)
Quarter: 2017Q4

REPORT INFORMATION
  Report Type: Spontaneous
  Country: CN (occurrence: CN)
  Receive Date: 20171206
  Receipt Date: 20171206
  Transmission Date: 20180321
  Serious: Yes (Hospitalization)
  Sender: FDA-Public Use
  Company Number: CN-ABBVIE-17P-035-2183012-00

PATIENT

DRUGS (1)
  1. DEPAKINE CHRONO [Suspect]
     Active Substance: VALPROATE SODIUM
     Indication: EPILEPSY
     Dosage: EXTENDED RELEASE (REPORTED AS SUSTAINED RELEASE TABLETS)
     Route: 048

REACTIONS (1)
  - Cerebral infarction [Not Recovered/Not Resolved]
